FAERS Safety Report 13666685 (Version 1)
Quarter: 2017Q2

REPORT INFORMATION
  Report Type: Spontaneous
  Country: US (occurrence: US)
  Receive Date: 20170619
  Receipt Date: 20170619
  Transmission Date: 20170830
  Serious: Yes (Other)
  Sender: FDA-Public Use
  Company Number: US-ROCHE-1436229

PATIENT
  Sex: Male

DRUGS (2)
  1. XELODA [Suspect]
     Active Substance: CAPECITABINE
     Dosage: 4 TAB BID - BID 2 WK OFF, 1 WK ON
     Route: 048
     Dates: start: 20140604
  2. XELODA [Suspect]
     Active Substance: CAPECITABINE
     Indication: PRODUCT USED FOR UNKNOWN INDICATION
     Dosage: 14 DAYS ON,7 OFF
     Route: 048
     Dates: start: 20140624

REACTIONS (6)
  - Diarrhoea [Unknown]
  - Psychiatric symptom [Unknown]
  - Depression [Not Recovered/Not Resolved]
  - Weight decreased [Unknown]
  - Appetite disorder [Unknown]
  - Affect lability [Unknown]
